FAERS Safety Report 4466076-0 (Version None)
Quarter: 2004Q3

REPORT INFORMATION
  Report Type: 
  Country: None (occurrence: None)
  Receive Date: 20040930
  Receipt Date: 20040930
  Transmission Date: 20050211
  Serious: Yes (Hospitalization)
  Sender: FDA-Public Use
  Company Number: None

PATIENT
  Age: 82 Year
  Sex: Male

DRUGS (1)
  1. ARICEPT [Suspect]
     Indication: DEMENTIA
     Dosage: 10 MG AT BEDTIME ORAL
     Route: 048

REACTIONS (4)
  - CONVULSION [None]
  - HEMIPARESIS [None]
  - MIOSIS [None]
  - POSTICTAL STATE [None]
